FAERS Safety Report 21373704 (Version 1)
Quarter: 2022Q3

REPORT INFORMATION
  Report Type: Report from Study
  Country: US (occurrence: US)
  Receive Date: 20220926
  Receipt Date: 20220926
  Transmission Date: 20221027
  Serious: No
  Sender: FDA-Public Use
  Company Number: US-ACADIA PHARMACEUTICALS INC.-ACA-2022-PIM-002974

PATIENT
  Age: 72 Year
  Sex: Female

DRUGS (7)
  1. NUPLAZID [Suspect]
     Active Substance: PIMAVANSERIN TARTRATE
     Indication: Parkinson^s disease psychosis
     Dosage: 34 MILLIGRAM, QD
     Route: 048
     Dates: start: 20220817
  2. KEPPRA [Concomitant]
     Active Substance: LEVETIRACETAM
  3. METOPROLOL [Concomitant]
     Active Substance: METOPROLOL
  4. CARBIDOPA\LEVODOPA [Concomitant]
     Active Substance: CARBIDOPA\LEVODOPA
  5. DULOXETINE [Concomitant]
     Active Substance: DULOXETINE
  6. ROSUVASTATIN [Concomitant]
     Active Substance: ROSUVASTATIN
  7. VITAMINS [Concomitant]
     Active Substance: VITAMINS

REACTIONS (5)
  - Tremor [Not Recovered/Not Resolved]
  - Paranoia [Not Recovered/Not Resolved]
  - Drug ineffective [Not Recovered/Not Resolved]
  - Hallucination, visual [Not Recovered/Not Resolved]
  - Hallucination [Not Recovered/Not Resolved]

NARRATIVE: CASE EVENT DATE: 20220828
